FAERS Safety Report 24759724 (Version 1)
Quarter: 2024Q4

REPORT INFORMATION
  Report Type: Spontaneous
  Country: US (occurrence: None)
  Receive Date: 20241219
  Receipt Date: 20241219
  Transmission Date: 20250115
  Serious: Yes (Other)
  Sender: Public
  Company Number: None

PATIENT
  Age: 66 Year
  Sex: Male
  Weight: 90.58 kg

DRUGS (7)
  1. DULAGLUTIDE [Suspect]
     Active Substance: DULAGLUTIDE
     Indication: Diabetes mellitus
     Dosage: 0.75 MG EVERY 7 DAYS SUBCUTANEOUS?
     Route: 058
  2. EMPAGLIFLOZIN [Suspect]
     Active Substance: EMPAGLIFLOZIN
  3. METFORMIN [Suspect]
     Active Substance: METFORMIN HYDROCHLORIDE
  4. METFORMIN [Suspect]
     Active Substance: METFORMIN HYDROCHLORIDE
  5. DULOXETINE [Concomitant]
     Active Substance: DULOXETINE
  6. METOPROLOL TARTRATE [Concomitant]
     Active Substance: METOPROLOL TARTRATE
  7. AMLODIPINE [Concomitant]
     Active Substance: AMLODIPINE BESYLATE

REACTIONS (4)
  - Diarrhoea [None]
  - Therapy cessation [None]
  - Vomiting [None]
  - Nausea [None]

NARRATIVE: CASE EVENT DATE: 20240917
